FAERS Safety Report 19210928 (Version 1)
Quarter: 2021Q2

REPORT INFORMATION
  Report Type: Other
  Country: US (occurrence: US)
  Receive Date: 20210504
  Receipt Date: 20210504
  Transmission Date: 20210717
  Serious: Yes (Hospitalization)
  Sender: FDA-Public Use
  Company Number: US-ROCHE-2822080

PATIENT
  Age: 61 Year
  Sex: Female

DRUGS (2)
  1. ACTILYSE [Suspect]
     Active Substance: ALTEPLASE
     Indication: HAEMOTHORAX
     Dosage: TWICE DAILY INTRAPLEURAL ALTEPLASE FOR THREE DAYS
     Route: 034
  2. DORNASE ALFA. [Concomitant]
     Active Substance: DORNASE ALFA
     Indication: PRODUCT USED FOR UNKNOWN INDICATION
     Dosage: TWICE DAILY  DORNASE ALFA (DNASE)?FOR THREE DAYS

REACTIONS (1)
  - Haemoglobin decreased [Unknown]
